FAERS Safety Report 5576787-1 (Version None)
Quarter: 2007Q4

REPORT INFORMATION
  Report Type: 
  Country: None (occurrence: None)
  Receive Date: 20071228
  Receipt Date: 20071221
  Transmission Date: 20080405
  Serious: Yes (Hospitalization)
  Sender: FDA-Public Use
  Company Number: ES-ABBOTT-07P-144-0431203-00

PATIENT
  Age: 40 Year
  Sex: Male

DRUGS (6)
  1. KALETRA [Suspect]
     Indication: HIV INFECTION
     Dosage: 6 TABLETS DAILY
     Route: 048
     Dates: start: 20020101, end: 20071111
  2. TENOFOVIR DISOPROXIL FUMARATE [Suspect]
     Indication: HIV INFECTION
     Dosage: 245 MG DAILY
     Route: 048
     Dates: start: 20030101, end: 20071111
  3. LAMIVUDINE [Suspect]
     Indication: HIV INFECTION
     Dosage: 150 MG DAILY
     Route: 048
     Dates: start: 20030101, end: 20071111
  4. ADOLONTA RETARD [Suspect]
     Indication: HYSTEROSCOPY
     Dosage: 150 MG DAILY
     Route: 048
     Dates: start: 20071010, end: 20071028
  5. AUGMENTIN '125' [Suspect]
     Indication: INFECTION PROPHYLAXIS
     Dosage: 875/125 MG EVERY 8 HOURS
     Route: 048
     Dates: start: 20071010, end: 20071028
  6. LEVOFLOXACIN [Suspect]
     Indication: INFECTION PROPHYLAXIS
     Dosage: 500 MG DAILY
     Route: 048
     Dates: start: 20071010, end: 20071028

REACTIONS (6)
  - ABDOMINAL PAIN UPPER [None]
  - ACHOLIA [None]
  - CHOLURIA [None]
  - HEPATITIS CHOLESTATIC [None]
  - JAUNDICE [None]
  - PRURITUS [None]
